FAERS Safety Report 7899218-5 (Version None)
Quarter: 2011Q4

REPORT INFORMATION
  Report Type: 
  Country: None (occurrence: None)
  Receive Date: 20111107
  Receipt Date: 20110912
  Transmission Date: 20120403
  Serious: No
  Sender: FDA-Public Use
  Company Number: US-AMGEN-USASP2011046613

PATIENT
  Age: 62 Year
  Sex: Female

DRUGS (1)
  1. ENBREL [Suspect]
     Indication: RHEUMATOID ARTHRITIS
     Dosage: UNK
     Dates: start: 20080101, end: 20110822

REACTIONS (4)
  - MEMORY IMPAIRMENT [None]
  - FIBROMYALGIA [None]
  - RHEUMATOID ARTHRITIS [None]
  - INSOMNIA [None]
